FAERS Safety Report 12994619 (Version 2)
Quarter: 2016Q4

REPORT INFORMATION
  Report Type: Spontaneous
  Country: JP (occurrence: JP)
  Receive Date: 20161202
  Receipt Date: 20161212
  Transmission Date: 20170207
  Serious: Yes (Other)
  Sender: FDA-Public Use
  Company Number: PHJP2016JP034933

PATIENT
  Age: 63 Year
  Sex: Female

DRUGS (1)
  1. ZOMETA [Suspect]
     Active Substance: ZOLEDRONIC ACID
     Indication: METASTASES TO BONE
     Dosage: UNK
     Route: 042
     Dates: start: 201111

REACTIONS (14)
  - Oral pain [Unknown]
  - Breath odour [Recovering/Resolving]
  - Eating disorder [Unknown]
  - Purulent discharge [Recovering/Resolving]
  - Haemorrhage [Recovering/Resolving]
  - Salivary hypersecretion [Unknown]
  - Anaemia [Unknown]
  - Bone disorder [Unknown]
  - Oral disorder [Unknown]
  - Osteomyelitis [Unknown]
  - Protein total decreased [Unknown]
  - Osteonecrosis of jaw [Unknown]
  - Loose tooth [Unknown]
  - Fistula [Unknown]
